FAERS Safety Report 9679493 (Version 2)
Quarter: 2013Q4

REPORT INFORMATION
  Report Type: Spontaneous
  Country: US (occurrence: US)
  Receive Date: 20131109
  Receipt Date: 20131220
  Transmission Date: 20140711
  Serious: No
  Sender: FDA-Public Use
  Company Number: US-B.I. PHARMACEUTICALS,INC./RIDGEFIELD-2013-BI-34000BP

PATIENT
  Sex: Female
  Weight: 56 kg

DRUGS (12)
  1. SPIRIVA [Suspect]
     Indication: CHRONIC OBSTRUCTIVE PULMONARY DISEASE
     Dosage: 18 MCG
     Route: 055
     Dates: start: 2004
  2. SPIRIVA [Suspect]
     Indication: ASTHMA
  3. ADVAIR [Concomitant]
     Indication: ASTHMA
     Dosage: 2 PUF
     Route: 055
     Dates: start: 1999
  4. LIPITOR [Concomitant]
     Indication: BLOOD CHOLESTEROL INCREASED
     Dosage: 40 MG
     Route: 048
     Dates: start: 2012
  5. WELBUTRIN [Concomitant]
     Indication: PAIN
     Dosage: 150 MG
     Route: 048
     Dates: start: 2003
  6. ATENOLOL [Concomitant]
     Indication: HEART RATE ABNORMAL
     Dosage: 25 MG
     Route: 048
     Dates: start: 2000
  7. ASPIRIN [Concomitant]
     Indication: CARDIAC DISORDER
     Dosage: 81 MG
     Route: 048
     Dates: start: 2000
  8. NEURONTIN [Concomitant]
     Indication: CONVULSION
     Dosage: 300 MG
     Route: 048
     Dates: start: 201301
  9. CLARITIN [Concomitant]
     Indication: SINUS DISORDER
     Dosage: 10 MG
     Route: 048
     Dates: start: 2003
  10. FISH OIL [Concomitant]
     Indication: CORONARY ARTERY DISEASE
     Dosage: 1000 MG
     Route: 048
     Dates: start: 2006
  11. CO-Q 10 [Concomitant]
     Indication: BLOOD CHOLESTEROL INCREASED
     Dosage: 400 MG
     Route: 048
     Dates: start: 2013
  12. KEPPRA [Concomitant]
     Indication: CONVULSION
     Dosage: 1000 MG
     Route: 048
     Dates: start: 201204

REACTIONS (5)
  - Visual impairment [Not Recovered/Not Resolved]
  - Dry mouth [Not Recovered/Not Resolved]
  - Dental caries [Not Recovered/Not Resolved]
  - Osteopenia [Not Recovered/Not Resolved]
  - Dry mouth [Recovered/Resolved]
